FAERS Safety Report 6728031-7 (Version None)
Quarter: 2010Q2

REPORT INFORMATION
  Report Type: 
  Country: None (occurrence: None)
  Receive Date: 20100517
  Receipt Date: 20100504
  Transmission Date: 20101027
  Serious: Yes (Other)
  Sender: FDA-Public Use
  Company Number: CA-MERCK-0907CAN00093

PATIENT
  Age: 52 Year
  Sex: Male

DRUGS (19)
  1. ISENTRESS [Suspect]
     Indication: HIV INFECTION
     Route: 048
  2. ABACAVIR SULFATE [Suspect]
     Indication: HIV INFECTION
     Route: 065
  3. DARUNAVIR [Suspect]
     Indication: HIV INFECTION
     Route: 065
  4. DELAVIRDINE MESYLATE [Suspect]
     Indication: HIV INFECTION
     Route: 065
  5. DIDANOSINE [Suspect]
     Indication: HIV INFECTION
     Route: 065
  6. EFAVIRENZ [Suspect]
     Indication: HIV INFECTION
     Route: 048
  7. ENFUVIRTIDE [Suspect]
     Indication: HIV INFECTION
     Route: 058
  8. ETRAVIRINE [Suspect]
     Indication: HIV INFECTION
     Route: 065
  9. SAQUINAVIR [Suspect]
     Indication: HIV INFECTION
     Route: 048
  10. ZIDOVUDINE [Suspect]
     Indication: HIV INFECTION
     Route: 065
  11. TENOFOVIR DISOPROXIL FUMARATE [Suspect]
     Indication: HIV INFECTION
     Route: 065
  12. STAVUDINE [Suspect]
     Indication: HIV INFECTION
     Route: 065
  13. RITONAVIR [Suspect]
     Indication: HIV INFECTION
     Route: 065
  14. CRIXIVAN [Suspect]
     Indication: HIV INFECTION
     Route: 048
  15. LAMIVUDINE [Suspect]
     Indication: HIV INFECTION
     Route: 065
  16. LOPINAVIR [Suspect]
     Indication: HIV INFECTION
     Route: 065
  17. LOPINAVIR AND RITONAVIR [Suspect]
     Indication: HIV INFECTION
     Route: 065
  18. NELFINAVIR MESYLATE [Suspect]
     Indication: HIV INFECTION
     Route: 065
  19. NEVIRAPINE [Suspect]
     Indication: HIV INFECTION
     Route: 065

REACTIONS (5)
  - DIPLOPIA [None]
  - EYELID PTOSIS [None]
  - LIPODYSTROPHY ACQUIRED [None]
  - MITOCHONDRIAL TOXICITY [None]
  - PROGRESSIVE EXTERNAL OPHTHALMOPLEGIA [None]
